FAERS Safety Report 4793600-0 (Version None)
Quarter: 2005Q4

REPORT INFORMATION
  Report Type: 
  Country: None (occurrence: None)
  Receive Date: 20051011
  Receipt Date: 20040203
  Transmission Date: 20060501
  Serious: Yes (Hospitalization)
  Sender: FDA-Public Use
  Company Number: US-BOEHRINGER INGELHEIM PHARMACEUTICALS, INC.-2004-BP-00737BP

PATIENT
  Sex: Male
  Weight: 64.4 kg

DRUGS (3)
  1. TIPRANAVIR / RITONAVIR CAPSULES [Suspect]
     Indication: HIV INFECTION
     Dosage: TPV 1000 MG / RTV 400 MG
     Route: 048
     Dates: start: 20031017
  2. DIDANOSINE [Concomitant]
     Indication: HIV INFECTION
     Route: 048
     Dates: start: 20031001
  3. LAMIVUDINE [Concomitant]
     Indication: HIV INFECTION
     Route: 048
     Dates: start: 20020306

REACTIONS (9)
  - BLOOD PRESSURE DECREASED [None]
  - COUGH [None]
  - DYSPNOEA EXERTIONAL [None]
  - FATIGUE [None]
  - HAEMATOCRIT DECREASED [None]
  - HAEMOGLOBIN DECREASED [None]
  - HERPES ZOSTER [None]
  - MOLLUSCUM CONTAGIOSUM [None]
  - PYREXIA [None]
